FAERS Safety Report 5793615-X (Version None)
Quarter: 2008Q2

REPORT INFORMATION
  Report Type: 
  Country: None (occurrence: None)
  Receive Date: 20080627
  Receipt Date: 20080623
  Transmission Date: 20081010
  Serious: Yes (Other)
  Sender: FDA-Public Use
  Company Number: US-BRISTOL-MYERS SQUIBB COMPANY-14239313

PATIENT

DRUGS (1)
  1. ORENCIA [Suspect]

REACTIONS (2)
  - RASH GENERALISED [None]
  - SYSTEMIC LUPUS ERYTHEMATOSUS [None]
